FAERS Safety Report 4662964-0 (Version None)
Quarter: 2005Q2

REPORT INFORMATION
  Report Type: 
  Country: None (occurrence: None)
  Receive Date: 20050513
  Receipt Date: 20050428
  Transmission Date: 20051028
  Serious: Yes (Hospitalization)
  Sender: FDA-Public Use
  Company Number: GBWYE628028APR05

PATIENT
  Age: 51 Year
  Sex: Female

DRUGS (4)
  1. MYAMBUTOL [Suspect]
     Indication: CERVICAL GLAND TUBERCULOSIS
     Dosage: 800 MG 047
     Dates: start: 20050401, end: 20050412
  2. RIFATER [Suspect]
     Indication: CERVICAL GLAND TUBERCULOSIS
     Dosage: 5 TABLETS QD 047
     Dates: start: 20050401, end: 20050412
  3. THYROXINE [Concomitant]
  4. INDAPAMIDE [Concomitant]

REACTIONS (4)
  - ALANINE AMINOTRANSFERASE INCREASED [None]
  - BLOOD ALKALINE PHOSPHATASE INCREASED [None]
  - LIVER FUNCTION TEST ABNORMAL [None]
  - PANCREATITIS [None]
